FAERS Safety Report 4953916-1 (Version None)
Quarter: 2006Q1

REPORT INFORMATION
  Report Type: 
  Country: None (occurrence: None)
  Receive Date: 20060322
  Receipt Date: 20060310
  Transmission Date: 20060701
  Serious: Yes (Other)
  Sender: FDA-Public Use
  Company Number: CH200603002527

PATIENT
  Age: 35 Year
  Sex: Female

DRUGS (5)
  1. ZYPREXA [Suspect]
     Indication: SCHIZOAFFECTIVE DISORDER
     Dosage: 2.5 MG, 3/D, ORAL
     Route: 048
     Dates: end: 20060124
  2. XANAX   /USA/ (ALPRAZOLAM) [Concomitant]
  3. REMERON [Concomitant]
  4. HERBAL PREPARATION [Concomitant]
  5. STILNOX  /FRA/ (ZOLPIDEM) [Concomitant]

REACTIONS (1)
  - DRUG EXPOSURE DURING PREGNANCY [None]
